FAERS Safety Report 5131327-6 (Version None)
Quarter: 2006Q4

REPORT INFORMATION
  Report Type: 
  Country: None (occurrence: None)
  Receive Date: 20061020
  Receipt Date: 20050729
  Transmission Date: 20070319
  Serious: Yes (Other)
  Sender: FDA-Public Use
  Company Number: BE-AMGEN-UK144769

PATIENT
  Sex: Female
  Weight: 56 kg

DRUGS (9)
  1. ARANESP [Suspect]
     Indication: RENAL FAILURE CHRONIC
     Route: 058
     Dates: start: 20021205
  2. DOLANTIN [Concomitant]
     Route: 065
  3. LAMICTAL [Concomitant]
     Route: 048
     Dates: start: 20060207
  4. LIPITOR [Concomitant]
     Route: 048
     Dates: start: 20051114
  5. RENITEC [Concomitant]
     Route: 048
     Dates: start: 20051021
  6. CALCIUM CARBONATE [Concomitant]
     Route: 048
     Dates: start: 20050408
  7. SELO-ZOK [Concomitant]
     Route: 048
     Dates: start: 20011122
  8. MULTIVITAMINS WITH MINERALS [Concomitant]
     Route: 048
     Dates: start: 20020307
  9. PHENYTOIN SODIUM [Concomitant]
     Route: 048
     Dates: start: 20051013

REACTIONS (2)
  - ANAEMIA [None]
  - THERAPEUTIC RESPONSE DECREASED [None]
